FAERS Safety Report 10056667 (Version 1)
Quarter: 2014Q2

REPORT INFORMATION
  Report Type: Spontaneous
  Country: US (occurrence: US)
  Receive Date: 20140403
  Receipt Date: 20140403
  Transmission Date: 20141212
  Serious: Yes (Death)
  Sender: FDA-Public Use
  Company Number: US-BRISTOL-MYERS SQUIBB COMPANY-20576013

PATIENT
  Age: 62 Year
  Sex: Female
  Weight: 77.1 kg

DRUGS (1)
  1. ABILIFY [Suspect]

REACTIONS (5)
  - Myocardial infarction [Fatal]
  - Bacterial sepsis [Fatal]
  - Empyema [Fatal]
  - Anaemia [Fatal]
  - Influenza [Fatal]
